FAERS Safety Report 8471339 (Version 3)
Quarter: 2013Q1

REPORT INFORMATION
  Report Type: Spontaneous
  Country: US (occurrence: US)
  Receive Date: 20120322
  Receipt Date: 20130307
  Transmission Date: 20140127
  Serious: Yes (Other)
  Sender: FDA-Public Use
  Company Number: US-JNJFOC-20110805746

PATIENT
  Sex: Female

DRUGS (3)
  1. TOPAMAX [Suspect]
     Indication: EPILEPSY
     Route: 048
     Dates: start: 2007, end: 20080728
  2. PRENATAL VITAMIN [Concomitant]
     Route: 065
  3. FOLIC ACID [Concomitant]
     Route: 065

REACTIONS (3)
  - Prolonged pregnancy [Recovered/Resolved]
  - Exposure during pregnancy [Recovered/Resolved]
  - Emotional disorder [Unknown]
